FAERS Safety Report 9604994 (Version 2)
Quarter: 2013Q4

REPORT INFORMATION
  Report Type: Spontaneous
  Country: US (occurrence: US)
  Receive Date: 20131008
  Receipt Date: 20131008
  Transmission Date: 20140711
  Serious: Yes (Other)
  Sender: FDA-Public Use
  Company Number: US-BAXTER-2013BAX009379

PATIENT
  Age: 68 Year
  Sex: Male

DRUGS (2)
  1. DIANEAL LOW CALCIUM [Suspect]
     Indication: PERITONEAL DIALYSIS
     Route: 033
     Dates: start: 20130219
  2. DIANEAL LOW CALCIUM [Suspect]
     Route: 033

REACTIONS (5)
  - Peritonitis [Recovering/Resolving]
  - Abdominal hernia [Unknown]
  - Nasopharyngitis [Unknown]
  - Peritoneal disorder [Recovering/Resolving]
  - Scrotal pain [Unknown]
